FAERS Safety Report 9324157 (Version 1)
Quarter: 2013Q2

REPORT INFORMATION
  Report Type: Spontaneous
  Country: FR (occurrence: FR)
  Receive Date: 20130603
  Receipt Date: 20130603
  Transmission Date: 20140414
  Serious: Yes (Hospitalization)
  Sender: FDA-Public Use
  Company Number: FR-SANOFI-AVENTIS-2013SA052299

PATIENT
  Age: 54 Year
  Sex: Female

DRUGS (5)
  1. RIFADINE [Suspect]
     Indication: OSTEOMYELITIS
     Route: 048
     Dates: start: 20111121, end: 20111215
  2. VANCOMYCINE [Suspect]
     Indication: OSTEOMYELITIS
     Route: 042
     Dates: start: 20111119, end: 20111120
  3. VANCOMYCINE [Suspect]
     Indication: OSTEOMYELITIS
     Route: 042
     Dates: start: 20111121
  4. VANCOMYCINE [Suspect]
     Indication: OSTEOMYELITIS
     Route: 042
     Dates: start: 20111202, end: 20111215
  5. GENTAMICIN [Concomitant]
     Indication: OSTEOMYELITIS
     Route: 042
     Dates: start: 20111118, end: 20111121

REACTIONS (10)
  - Drug reaction with eosinophilia and systemic symptoms [Recovered/Resolved]
  - Rash maculo-papular [Recovered/Resolved]
  - Pruritus [Recovered/Resolved]
  - Pyrexia [Recovered/Resolved]
  - Chills [Recovered/Resolved]
  - Erythema [Recovered/Resolved]
  - Cheilitis [Recovered/Resolved]
  - Rash morbilliform [Recovered/Resolved]
  - Dysphagia [Recovered/Resolved]
  - Skin exfoliation [Recovered/Resolved]
